FAERS Safety Report 4379599-X (Version None)
Quarter: 2004Q2

REPORT INFORMATION
  Report Type: 
  Country: None (occurrence: None)
  Receive Date: 20040414
  Receipt Date: 20040113
  Transmission Date: 20050107
  Serious: No
  Sender: FDA-Public Use
  Company Number: 2004S1000025

PATIENT

DRUGS (1)
  1. CUBICIN [Suspect]
     Indication: INFECTION
     Dates: start: 20031101

REACTIONS (1)
  - NEUTROPENIA [None]
